FAERS Safety Report 4365811-X (Version None)
Quarter: 2004Q2

REPORT INFORMATION
  Report Type: 
  Country: None (occurrence: None)
  Receive Date: 20040521
  Receipt Date: 20040514
  Transmission Date: 20050107
  Serious: Yes (Hospitalization)
  Sender: FDA-Public Use
  Company Number: 2004193453FR

PATIENT
  Age: 33 Year
  Sex: Male
  Weight: 79 kg

DRUGS (2)
  1. SALAZOPURINE(SULFASALAZINE)TABLET [Suspect]
     Dosage: 2G/DAY, ORAL
     Route: 048
     Dates: start: 20031031, end: 20031128
  2. FELDENE [Suspect]
     Dosage: 20 MG/DAY, ORAL
     Route: 048
     Dates: start: 20031031, end: 20031128

REACTIONS (15)
  - C-REACTIVE PROTEIN INCREASED [None]
  - COUGH [None]
  - DYSPHAGIA [None]
  - DYSPNOEA [None]
  - ERYTHEMA [None]
  - HEPATITIS [None]
  - HEPATITIS B SURFACE ANTIGEN POSITIVE [None]
  - HYPERSENSITIVITY [None]
  - LYMPHADENOPATHY [None]
  - PYREXIA [None]
  - RASH PRURITIC [None]
  - SEBORRHOEIC DERMATITIS [None]
  - SPLENOMEGALY [None]
  - STOMATITIS [None]
  - STREPTOCOCCAL SEROLOGY POSITIVE [None]
